FAERS Safety Report 8796358 (Version 1)
Quarter: 2012Q4

REPORT INFORMATION
  Report Type: Report from Study
  Country: DE (occurrence: DE)
  Receive Date: 20120920
  Receipt Date: 20120920
  Transmission Date: 20130627
  Serious: Yes (Life-Threatening, Hospitalization)
  Sender: FDA-Public Use
  Company Number: PHHY2012DE071103

PATIENT
  Age: 79 Year
  Sex: Male

DRUGS (5)
  1. EXELON [Suspect]
     Indication: DEMENTIA
     Dosage: 9.5 mg per day
     Route: 062
     Dates: start: 20120420
  2. IBUPROFEN [Concomitant]
     Indication: PAIN
     Dosage: 800 mg, Daily
     Route: 048
     Dates: start: 20110824
  3. NEUPRO [Concomitant]
     Indication: RESTLESS LEGS SYNDROME
     Dosage: 3 mg per day
     Route: 062
     Dates: start: 20110919
  4. LEVODOPA BENSERAZIDE HYDROCHLO [Concomitant]
     Indication: PARKINSON^S DISEASE
     Dosage: 100 mg/25 mg, Daily
     Route: 048
     Dates: start: 20091118
  5. ZID [Concomitant]

REACTIONS (3)
  - Lung neoplasm malignant [Unknown]
  - Ischaemic stroke [Recovering/Resolving]
  - Syncope [Recovered/Resolved]
